FAERS Safety Report 7887077-6 (Version None)
Quarter: 2011Q4

REPORT INFORMATION
  Report Type: 
  Country: None (occurrence: None)
  Receive Date: 20111102
  Receipt Date: 20110714
  Transmission Date: 20120403
  Serious: No
  Sender: FDA-Public Use
  Company Number: US-AMGEN-USASP2011035931

PATIENT
  Age: 17 Year
  Sex: Female

DRUGS (1)
  1. ENBREL [Suspect]
     Indication: RHEUMATOID ARTHRITIS
     Dosage: 50 MG, QWK
     Dates: start: 20110101, end: 20110710

REACTIONS (6)
  - FRACTURE [None]
  - HEADACHE [None]
  - JOINT SWELLING [None]
  - ARTHRALGIA [None]
  - SINUS HEADACHE [None]
  - BRONCHITIS [None]
